FAERS Safety Report 7631517-4 (Version None)
Quarter: 2011Q3

REPORT INFORMATION
  Report Type: 
  Country: None (occurrence: None)
  Receive Date: 20110715
  Receipt Date: 20110627
  Transmission Date: 20111222
  Serious: Yes (Other)
  Sender: FDA-Public Use
  Company Number: 1000022131

PATIENT
  Age: 47 Year
  Sex: Male
  Weight: 113 kg

DRUGS (15)
  1. ALPRAZOLAM [Suspect]
     Dosage: 1 MG (0.5 MG, 2 IN 1 D)
  2. ERLOTINIB HYDROCHLORIDE [Suspect]
     Dosage: 150 MG, ORAL
     Route: 048
  3. PACLITAXEL [Suspect]
     Dosage: 130 MG, INTRAVENOUS (NOT OTHERWISE SPECIFIED)
     Route: 042
  4. WARFARIN SODIUM [Suspect]
     Dosage: 2.5 MG
  5. VITAMIN K TAB [Suspect]
  6. CITALOPRAM HYDROBROMIDE [Suspect]
     Dosage: 10 MG
  7. DARBEPOETIN ALFA (DARBEPOETIN ALFA) [Suspect]
  8. GRANISETRON [Suspect]
     Dosage: 1 MG, INTRAVENOUS (NOT OTHERWISE SPECIFIED)
     Route: 042
  9. OXYCODONE HCL [Suspect]
     Dosage: 5 MG
  10. BEVACIZUMB (BEVACIZUMB) [Suspect]
     Dosage: 1497 MG
  11. DIPHENHYDRAMINE HCL [Suspect]
     Dosage: 25 MG
  12. LOPERAMIDE HCL [Suspect]
  13. DEXAMETHASONE [Suspect]
     Dosage: 20 MG
  14. CARBOPLATIN [Suspect]
     Dosage: 285 MG, INTRAVENOUS  (NOT OTHERWISE SPECIFIED)
     Route: 042
  15. CIMETIDINE [Suspect]
     Dosage: 300 MG, INTRAVENOUS (NOT OTHERWISE SPECIFIED)
     Route: 042

REACTIONS (7)
  - INTERNATIONAL NORMALISED RATIO INCREASED [None]
  - SWELLING [None]
  - HAEMATOMA [None]
  - DRUG INTERACTION [None]
  - DIARRHOEA [None]
  - CONTUSION [None]
  - RASH [None]
